FAERS Safety Report 9482078 (Version 1)
Quarter: 2013Q3

REPORT INFORMATION
  Report Type: Spontaneous
  Country: MW (occurrence: MW)
  Receive Date: 20130828
  Receipt Date: 20130828
  Transmission Date: 20140515
  Serious: Yes (Hospitalization, Disabling)
  Sender: FDA-Public Use
  Company Number: MW-MYLANLABS-2013S1018441

PATIENT
  Age: 25 Year
  Sex: Male

DRUGS (4)
  1. NEVIRAPINE [Suspect]
     Indication: HIV INFECTION
     Route: 065
     Dates: start: 2012
  2. COTRIMOXAZOLE [Suspect]
     Route: 065
     Dates: start: 201208
  3. STAVUDINE [Concomitant]
     Indication: HIV INFECTION
     Route: 065
     Dates: start: 2012
  4. LAMIVUDINE [Concomitant]
     Indication: HIV INFECTION
     Route: 065
     Dates: start: 2012

REACTIONS (2)
  - Stevens-Johnson syndrome [Unknown]
  - Blindness [Unknown]
